FAERS Safety Report 7940810-7 (Version None)
Quarter: 2011Q4

REPORT INFORMATION
  Report Type: 
  Country: None (occurrence: None)
  Receive Date: 20111128
  Receipt Date: 20111123
  Transmission Date: 20120403
  Serious: Yes (Hospitalization, Other)
  Sender: FDA-Public Use
  Company Number: US-PFIZER INC-2010103489

PATIENT
  Sex: Female

DRUGS (3)
  1. CHANTIX [Suspect]
     Indication: SMOKING CESSATION THERAPY
     Dosage: 0.5MG AND 1MG, STARTING MONTH PACK
     Route: 048
     Dates: start: 20070801
  2. ETODOLAC [Concomitant]
     Indication: BACK PAIN
     Dosage: UNK
     Dates: start: 20020101
  3. CHANTIX [Suspect]
     Dosage: SAMPLE PACK
     Dates: start: 20070803, end: 20070815

REACTIONS (3)
  - TOXIC EPIDERMAL NECROLYSIS [None]
  - HYPERAESTHESIA [None]
  - STEVENS-JOHNSON SYNDROME [None]
